FAERS Safety Report 7446474-3 (Version None)
Quarter: 2011Q2

REPORT INFORMATION
  Report Type: 
  Country: None (occurrence: None)
  Receive Date: 20110429
  Receipt Date: 20100712
  Transmission Date: 20111010
  Serious: No
  Sender: FDA-Public Use
  Company Number: US-ASTRAZENECA-2010SE32425

PATIENT
  Sex: Male
  Weight: 95.3 kg

DRUGS (2)
  1. NEXIUM [Suspect]
     Indication: GASTROOESOPHAGEAL REFLUX DISEASE
     Route: 048
     Dates: start: 20100622
  2. CLARITIN [Suspect]
     Route: 065

REACTIONS (7)
  - ABDOMINAL PAIN UPPER [None]
  - SPEECH DISORDER [None]
  - NIGHT SWEATS [None]
  - DYSPHONIA [None]
  - POTENTIATING DRUG INTERACTION [None]
  - HYPERSENSITIVITY [None]
  - HEADACHE [None]
